FAERS Safety Report 6734510-9 (Version None)
Quarter: 2010Q2

REPORT INFORMATION
  Report Type: 
  Country: None (occurrence: None)
  Receive Date: 20100520
  Receipt Date: 20100514
  Transmission Date: 20101027
  Serious: Yes (Other)
  Sender: FDA-Public Use
  Company Number: DE-AMGEN-UK378886

PATIENT
  Sex: Female
  Weight: 105 kg

DRUGS (4)
  1. NPLATE [Suspect]
     Indication: IDIOPATHIC THROMBOCYTOPENIC PURPURA
     Route: 058
     Dates: start: 20090618
  2. PREDNISOLONE [Concomitant]
     Dates: start: 20090618
  3. MYCOPHENOLATE MOFETIL [Concomitant]
     Dates: start: 20090618, end: 20090718
  4. PREDNISONE TAB [Concomitant]
     Dates: end: 20091022

REACTIONS (2)
  - PLATELET COUNT DECREASED [None]
  - THERAPEUTIC RESPONSE DECREASED [None]
